FAERS Safety Report 9029204 (Version 3)
Quarter: 2019Q3

REPORT INFORMATION
  Report Type: Spontaneous
  Country: CA (occurrence: CA)
  Receive Date: 20130124
  Receipt Date: 20190822
  Transmission Date: 20191005
  Serious: Yes (Other)
  Sender: FDA-Public Use
  Company Number: CA-AMGEN-CANSP2013004594

PATIENT
  Age: 62 Year
  Sex: Female

DRUGS (13)
  1. ENBREL [Suspect]
     Active Substance: ETANERCEPT
     Indication: RHEUMATOID ARTHRITIS
     Dosage: UNK
     Route: 065
     Dates: start: 20120712
  2. ACTEMRA [Suspect]
     Active Substance: TOCILIZUMAB
     Indication: DRUG INEFFECTIVE
     Dosage: UNK
     Route: 065
  3. EFFEXOR [Concomitant]
     Active Substance: VENLAFAXINE HYDROCHLORIDE
     Dosage: UNK
  4. MTX [Suspect]
     Active Substance: METHOTREXATE SODIUM
     Indication: DRUG INEFFECTIVE
     Dosage: 12.5-25 MG, QWK
     Route: 065
     Dates: start: 201110
  5. TOCILIZUMAB. [Suspect]
     Active Substance: TOCILIZUMAB
     Indication: DRUG INEFFECTIVE
     Dosage: UNK
     Route: 065
  6. HYDROXYCHLOROQUINE SULFATE. [Suspect]
     Active Substance: HYDROXYCHLOROQUINE SULFATE
     Indication: DRUG INEFFECTIVE
     Route: 065
  7. LEFLUNOMIDE. [Suspect]
     Active Substance: LEFLUNOMIDE
     Indication: DRUG INEFFECTIVE
     Dosage: 20 MILLIGRAM, QD
     Route: 065
  8. PLAQUENIL [Suspect]
     Active Substance: HYDROXYCHLOROQUINE SULFATE
     Indication: DRUG INEFFECTIVE
     Dosage: UNK
     Route: 065
  9. VENLAFAXINE HYDROCHLORIDE. [Concomitant]
     Active Substance: VENLAFAXINE HYDROCHLORIDE
     Dosage: UNK
  10. HYZAAR [Concomitant]
     Active Substance: HYDROCHLOROTHIAZIDE\LOSARTAN POTASSIUM
     Dosage: UNK
  11. ABATACEPT [Suspect]
     Active Substance: ABATACEPT
     Indication: DRUG INEFFECTIVE
     Dosage: UNK
     Route: 065
  12. METHOTREXATE. [Suspect]
     Active Substance: METHOTREXATE
     Indication: DRUG INEFFECTIVE
     Dosage: UNK UNK, QWK
     Route: 065
  13. FOLIC ACID. [Concomitant]
     Active Substance: FOLIC ACID
     Dosage: UNK

REACTIONS (11)
  - Laboratory test abnormal [Recovered/Resolved]
  - Injection site infection [Recovered/Resolved]
  - Injection site pain [Recovered/Resolved]
  - Drug ineffective [Recovered/Resolved]
  - Injection site reaction [Recovered/Resolved]
  - Injection site erythema [Recovered/Resolved]
  - Injection site recall reaction [Recovered/Resolved]
  - Adverse drug reaction [Recovered/Resolved]
  - Drug hypersensitivity [Recovered/Resolved]
  - Injection site swelling [Recovered/Resolved]
  - Injection site warmth [Recovered/Resolved]

NARRATIVE: CASE EVENT DATE: 201307
